FAERS Safety Report 7722748-3 (Version None)
Quarter: 2011Q3

REPORT INFORMATION
  Report Type: 
  Country: None (occurrence: None)
  Receive Date: 20110831
  Receipt Date: 20110819
  Transmission Date: 20111222
  Serious: Yes (Hospitalization)
  Sender: FDA-Public Use
  Company Number: US-CELGENEUS-163-21880-11082431

PATIENT
  Sex: Male
  Weight: 75.818 kg

DRUGS (5)
  1. REVLIMID [Suspect]
     Indication: MULTIPLE MYELOMA
     Dosage: 10 MILLIGRAM
     Route: 048
     Dates: start: 20101110, end: 20110801
  2. OMEPRAZOLE [Concomitant]
     Route: 065
  3. COUMADIN [Concomitant]
     Route: 065
  4. TYLENOL-500 [Concomitant]
     Route: 065
  5. DEXAMETHASONE [Concomitant]
     Route: 065

REACTIONS (3)
  - HYPOTHYROIDISM [None]
  - BLOOD GLUCOSE INCREASED [None]
  - ATRIAL FIBRILLATION [None]
